FAERS Safety Report 17754019 (Version 1)
Quarter: 2020Q2

REPORT INFORMATION
  Report Type: Spontaneous
  Country: FR (occurrence: FR)
  Receive Date: 20200506
  Receipt Date: 20200506
  Transmission Date: 20200714
  Serious: Yes (Hospitalization)
  Sender: FDA-Public Use
  Company Number: NVSC2020FR121520

PATIENT
  Age: 82 Year
  Sex: Female

DRUGS (9)
  1. CLOMIPRAMINE [Suspect]
     Active Substance: CLOMIPRAMINE
     Indication: PRODUCT USED FOR UNKNOWN INDICATION
     Dosage: UNK
     Route: 048
     Dates: start: 20200109
  2. CITALOPRAM [Concomitant]
     Active Substance: CITALOPRAM HYDROBROMIDE
     Indication: PRODUCT USED FOR UNKNOWN INDICATION
     Dosage: UNK (CHLORHYDRATE DE)
     Route: 065
  3. CLOMIPRAMINE [Suspect]
     Active Substance: CLOMIPRAMINE
     Dosage: UNK
     Route: 048
     Dates: start: 20200122
  4. TERCIAN [Suspect]
     Active Substance: CYAMEMAZINE
     Dosage: UNK
     Route: 065
     Dates: start: 20200123
  5. LOVENOX [Suspect]
     Active Substance: ENOXAPARIN SODIUM
     Dosage: UNK
     Route: 065
     Dates: start: 20200123
  6. TERCIAN [Suspect]
     Active Substance: CYAMEMAZINE
     Indication: PRODUCT USED FOR UNKNOWN INDICATION
     Dosage: UNK (SOLUTION BUVABLE EN GOUTTES)
     Route: 065
     Dates: start: 20191219
  7. TIAPRIDAL [Concomitant]
     Active Substance: TIAPRIDE HYDROCHLORIDE
     Indication: PRODUCT USED FOR UNKNOWN INDICATION
     Dosage: UNK ( 5 MG/GOUTTE, SOLUTION BUVABLE EN GOUTTES)
     Route: 065
     Dates: end: 20191220
  8. SERESTA [Concomitant]
     Active Substance: OXAZEPAM
     Indication: PRODUCT USED FOR UNKNOWN INDICATION
     Dosage: UNK
     Route: 065
  9. LOVENOX [Suspect]
     Active Substance: ENOXAPARIN SODIUM
     Indication: PROPHYLAXIS
     Dosage: UNK
     Route: 065
     Dates: start: 20191212

REACTIONS (1)
  - Cholestasis [Recovering/Resolving]

NARRATIVE: CASE EVENT DATE: 20200121
